FAERS Safety Report 7172720-X (Version None)
Quarter: 2010Q4

REPORT INFORMATION
  Report Type: 
  Country: None (occurrence: None)
  Receive Date: 20101218
  Receipt Date: 20101215
  Transmission Date: 20110411
  Serious: Yes (Hospitalization, Other)
  Sender: FDA-Public Use
  Company Number: CA-ABBOTT-10P-028-0691925-00

PATIENT
  Sex: Female

DRUGS (7)
  1. HUMIRA [Suspect]
     Indication: CROHN'S DISEASE
     Route: 058
     Dates: start: 20080604
  2. SULFAMED [Concomitant]
     Indication: FIBROMYALGIA
     Route: 048
     Dates: start: 20040101
  3. NEXIUM [Concomitant]
     Indication: GASTRIC DISORDER
     Route: 048
     Dates: start: 19950101
  4. ATARAX [Concomitant]
     Indication: URTICARIA
     Route: 048
     Dates: start: 20020101
  5. ESTRACE [Concomitant]
     Indication: HORMONE REPLACEMENT THERAPY
     Route: 048
     Dates: start: 19900101
  6. ZITRAM [Concomitant]
     Indication: FIBROMYALGIA
     Route: 048
     Dates: start: 20040101
  7. LYRICA [Concomitant]
     Indication: FIBROMYALGIA
     Route: 048
     Dates: start: 20040101

REACTIONS (3)
  - BLADDER DISORDER [None]
  - GASTROINTESTINAL MOTILITY DISORDER [None]
  - INFREQUENT BOWEL MOVEMENTS [None]
